FAERS Safety Report 4323057-5 (Version None)
Quarter: 2004Q1

REPORT INFORMATION
  Report Type: 
  Country: None (occurrence: None)
  Receive Date: 20040325
  Receipt Date: 20040316
  Transmission Date: 20041129
  Serious: Yes (Other)
  Sender: FDA-Public Use
  Company Number: 200410920JP

PATIENT
  Age: 79 Year
  Sex: Male

DRUGS (5)
  1. AMARYL [Suspect]
     Route: 048
  2. ADALAT [Concomitant]
  3. ACTOS [Concomitant]
  4. KINEDAK [Concomitant]
  5. TANATRIL ^TANABE^ [Concomitant]

REACTIONS (9)
  - ASTHENIA [None]
  - ATROPHY [None]
  - BEDRIDDEN [None]
  - BLOOD GLUCOSE ABNORMAL [None]
  - BLOOD IMMUNOGLOBULIN E INCREASED [None]
  - EOSINOPHIL COUNT INCREASED [None]
  - GLYCOSYLATED HAEMOGLOBIN INCREASED [None]
  - HYPOAESTHESIA [None]
  - NEUROPATHY PERIPHERAL [None]
